FAERS Safety Report 7349497-8 (Version None)
Quarter: 2011Q1

REPORT INFORMATION
  Report Type: 
  Country: None (occurrence: None)
  Receive Date: 20110314
  Receipt Date: 20110308
  Transmission Date: 20110831
  Serious: Yes (Hospitalization)
  Sender: FDA-Public Use
  Company Number: DE-SANOFI-AVENTIS-2009SA008712

PATIENT
  Age: 32 Year

DRUGS (8)
  1. OXALIPLATIN [Suspect]
     Indication: COLON CANCER
     Route: 041
     Dates: start: 20070402, end: 20070402
  2. CETUXIMAB [Suspect]
     Indication: COLON CANCER
     Route: 041
     Dates: start: 20070402, end: 20070402
  3. 5-FU [Suspect]
     Indication: COLON CANCER
     Route: 041
     Dates: start: 20070402, end: 20070402
  4. FOLINIC ACID [Suspect]
     Indication: COLON CANCER
     Route: 041
     Dates: start: 20070402, end: 20070402
  5. OXALIPLATIN [Suspect]
     Route: 041
     Dates: start: 20070611, end: 20070611
  6. 5-FU [Suspect]
     Route: 041
     Dates: start: 20070611, end: 20070611
  7. FOLINIC ACID [Suspect]
     Route: 041
     Dates: start: 20070611, end: 20070611
  8. CETUXIMAB [Suspect]
     Route: 041
     Dates: start: 20070611, end: 20070611

REACTIONS (4)
  - NEPHROLITHIASIS [None]
  - URETHRAL PERFORATION [None]
  - RENAL COLIC [None]
  - HAEMATURIA [None]
